FAERS Safety Report 4630387-6 (Version None)
Quarter: 2005Q2

REPORT INFORMATION
  Report Type: 
  Country: None (occurrence: None)
  Receive Date: 20050408
  Receipt Date: 20050310
  Transmission Date: 20051028
  Serious: Yes (Other)
  Sender: FDA-Public Use
  Company Number: PHEH2005US03010

PATIENT
  Age: 71 Year
  Sex: Female

DRUGS (8)
  1. ZOMETA [Suspect]
     Indication: MULTIPLE MYELOMA
     Dosage: 4 MG EVERY 4 WEEKS
     Dates: start: 20021121, end: 20050208
  2. VELCADE [Concomitant]
     Indication: MULTIPLE MYELOMA
     Dosage: 1.8 MG, UNK
     Dates: start: 20040818
  3. TAGAMET [Concomitant]
  4. SYNTHROID [Concomitant]
  5. CHEMOTHERAPEUTICS,OTHER [Concomitant]
  6. ALKERAN [Concomitant]
     Indication: MULTIPLE MYELOMA
     Dosage: 18 MG QD FOR 4 DAYS
     Route: 048
     Dates: start: 19970408, end: 20030730
  7. PREDNISONE [Concomitant]
     Indication: MULTIPLE MYELOMA
     Dosage: 20 MG QD FOR 4 DAYS EVERY CYCLE
     Route: 048
     Dates: start: 19970408, end: 20030730
  8. PREDNISONE [Concomitant]
     Dosage: 5 MG, QD
     Route: 048
     Dates: start: 20030730

REACTIONS (11)
  - BIOPSY SITE UNSPECIFIED ABNORMAL [None]
  - BLOOD GLUCOSE INCREASED [None]
  - COUGH [None]
  - FATIGUE [None]
  - IMPAIRED HEALING [None]
  - MYALGIA [None]
  - ORAL SOFT TISSUE DISORDER [None]
  - OSTEONECROSIS [None]
  - PAIN IN JAW [None]
  - SOFT TISSUE DISORDER [None]
  - TOOTH EXTRACTION [None]
